FAERS Safety Report 7991291-9 (Version None)
Quarter: 2011Q4

REPORT INFORMATION
  Report Type: 
  Country: None (occurrence: None)
  Receive Date: 20111219
  Receipt Date: 20111213
  Transmission Date: 20120403
  Serious: Yes (Hospitalization)
  Sender: FDA-Public Use
  Company Number: US-B.I. PHARMACEUTICALS,INC./RIDGEFIELD-2011-BP-28010BP

PATIENT
  Sex: Female

DRUGS (7)
  1. PROTONIX [Concomitant]
     Indication: DYSPEPSIA
     Dosage: 40 MG
     Route: 048
     Dates: start: 20110601
  2. PRADAXA [Suspect]
     Indication: ATRIAL FIBRILLATION
     Dosage: 300 MG
     Route: 048
     Dates: start: 20110601, end: 20111101
  3. MULTI-VITAMIN [Concomitant]
     Indication: ROUTINE HEALTH MAINTENANCE
     Dates: start: 19800101
  4. METOPROLOL [Concomitant]
     Indication: HYPERTENSION
     Dates: start: 20100101
  5. VITAMIN C [Concomitant]
     Indication: ROUTINE HEALTH MAINTENANCE
     Dates: start: 19800101
  6. CALCIUM [Concomitant]
     Indication: ROUTINE HEALTH MAINTENANCE
     Dates: start: 20000101
  7. MALTASE [Concomitant]
     Indication: HYPERTENSION
     Dosage: 5 MG
     Route: 048
     Dates: start: 20111207

REACTIONS (2)
  - IMPLANT SITE HAEMATOMA [None]
  - HYPOTENSION [None]
